FAERS Safety Report 15027635 (Version 1)
Quarter: 2018Q2

REPORT INFORMATION
  Report Type: Spontaneous
  Country: US (occurrence: US)
  Receive Date: 20180525
  Receipt Date: 20180525
  Transmission Date: 20180711
  Serious: No
  Sender: FDA-Public Use
  Company Number: None

PATIENT
  Age: 62 Year
  Sex: Female
  Weight: 86.6 kg

DRUGS (2)
  1. CYCLOPHOSPHAMIDE. [Suspect]
     Active Substance: CYCLOPHOSPHAMIDE
     Dates: end: 20140801
  2. TAXOL [Suspect]
     Active Substance: PACLITAXEL
     Dates: end: 20140801

REACTIONS (1)
  - Myelodysplastic syndrome [None]

NARRATIVE: CASE EVENT DATE: 20180110
